FAERS Safety Report 9055242 (Version 2)
Quarter: 2013Q1

REPORT INFORMATION
  Report Type: Spontaneous
  Country: BR (occurrence: BR)
  Receive Date: 20130206
  Receipt Date: 20130219
  Transmission Date: 20140127
  Serious: Yes (Death)
  Sender: FDA-Public Use
  Company Number: BR-PFIZER INC-2013047221

PATIENT
  Age: 95 Year
  Sex: Female
  Weight: 63 kg

DRUGS (1)
  1. LIPITOR [Suspect]
     Dosage: 20 MG (ONE TABLET), ONCE DAILY, ^ONCE^
     Route: 048
     Dates: start: 20090609

REACTIONS (1)
  - Multi-organ failure [Fatal]
